FAERS Safety Report 21914482 (Version 19)
Quarter: 2024Q1

REPORT INFORMATION
  Report Type: Other
  Country: SA (occurrence: None)
  Receive Date: 20230126
  Receipt Date: 20240331
  Transmission Date: 20240409
  Serious: Yes (Other)
  Sender: FDA-Public Use
  Company Number: SA-ROCHE-3257263

PATIENT
  Age: 3 Year
  Sex: Female
  Weight: 13.14 kg

DRUGS (4)
  1. EVRYSDI [Suspect]
     Active Substance: RISDIPLAM
     Indication: Spinal muscular atrophy
     Route: 048
     Dates: start: 20230102
  2. PULMICORT TURBUHALER [Concomitant]
     Active Substance: BUDESONIDE
     Indication: Cough
     Dates: start: 20230104
  3. ALBUTEROL [Concomitant]
     Active Substance: ALBUTEROL
     Indication: Cough
     Dates: start: 20230104
  4. CEFIXIME [Concomitant]
     Active Substance: CEFIXIME
     Indication: Upper respiratory tract infection
     Route: 048
     Dates: start: 20230105

REACTIONS (25)
  - Upper respiratory tract infection [Not Recovered/Not Resolved]
  - Acne [Not Recovered/Not Resolved]
  - Ear pruritus [Not Recovered/Not Resolved]
  - Pruritus [Not Recovered/Not Resolved]
  - Vomiting [Not Recovered/Not Resolved]
  - Chest pain [Not Recovered/Not Resolved]
  - Pyrexia [Not Recovered/Not Resolved]
  - Oropharyngeal pain [Recovering/Resolving]
  - Respiratory rate increased [Recovered/Resolved]
  - Abdominal pain upper [Not Recovered/Not Resolved]
  - Dehydration [Not Recovered/Not Resolved]
  - Hypoglycaemia [Recovered/Resolved]
  - Pneumonia [Recovering/Resolving]
  - Cough [Not Recovered/Not Resolved]
  - Headache [Not Recovered/Not Resolved]
  - Fatigue [Not Recovered/Not Resolved]
  - Abdominal pain [Not Recovered/Not Resolved]
  - Influenza [Recovered/Resolved]
  - Decreased appetite [Not Recovered/Not Resolved]
  - Intercepted product prescribing error [Unknown]
  - Product dose omission issue [Unknown]
  - Incorrect dose administered [Unknown]
  - Nasopharyngitis [Recovered/Resolved]
  - Productive cough [Recovering/Resolving]
  - Night sweats [Not Recovered/Not Resolved]

NARRATIVE: CASE EVENT DATE: 20230102
